FAERS Safety Report 24653712 (Version 1)
Quarter: 2024Q4

REPORT INFORMATION
  Report Type: Spontaneous
  Country: DE (occurrence: DE)
  Receive Date: 20241122
  Receipt Date: 20241122
  Transmission Date: 20250115
  Serious: Yes (Other)
  Sender: DR REDDYS
  Company Number: None

PATIENT
  Age: 38 Year
  Sex: Female
  Weight: 70 kg

DRUGS (18)
  1. FENTANYL [Suspect]
     Active Substance: FENTANYL
     Indication: Endotracheal intubation
     Dosage: 0.2 MG, UNK
  2. FENTANYL [Suspect]
     Active Substance: FENTANYL
     Dosage: 0.2 MG, UNK
  3. CLINDAMYCIN [Suspect]
     Active Substance: CLINDAMYCIN
     Indication: Antibiotic prophylaxis
     Dosage: 600 MG, UNK
  4. CLINDAMYCIN [Suspect]
     Active Substance: CLINDAMYCIN
     Dosage: 600 MG, UNK
  5. GENTAMICIN [Suspect]
     Active Substance: GENTAMICIN
     Indication: Product used for unknown indication
     Dosage: 120 MG, UNK
  6. ROCURONIUM BROMIDE [Suspect]
     Active Substance: ROCURONIUM BROMIDE
     Indication: Endotracheal intubation
     Dosage: 70 MG, UNK
  7. ROCURONIUM BROMIDE [Suspect]
     Active Substance: ROCURONIUM BROMIDE
     Indication: Maintenance of anaesthesia
     Dosage: 70 MG, UNK
  8. ROCURONIUM BROMIDE [Suspect]
     Active Substance: ROCURONIUM BROMIDE
     Dosage: 10 MG EACH, REPEATED DOSES
  9. EPINEPHRINE [Suspect]
     Active Substance: EPINEPHRINE
     Indication: Anaesthesia
     Dosage: 0.01 PG/KG/MIN
     Route: 042
  10. EPINEPHRINE [Suspect]
     Active Substance: EPINEPHRINE
     Indication: Hypotension
     Dosage: 0.02 MICRO-G/KG/MIN
  11. EPINEPHRINE [Suspect]
     Active Substance: EPINEPHRINE
     Dosage: 0.01 MICRO-G/KG/MIN
  12. DESFLURANE [Suspect]
     Active Substance: DESFLURANE
     Indication: Maintenance of anaesthesia
     Dosage: 3.9-4.6% VOL
  13. DESFLURANE [Suspect]
     Active Substance: DESFLURANE
     Indication: Anaesthesia
     Dosage: 3.9-4.6% VOL%
  14. REMIFENTANIL [Suspect]
     Active Substance: REMIFENTANIL
     Indication: Maintenance of anaesthesia
     Dosage: 0.12 MICRO-G/KG/MIN
  15. REMIFENTANIL [Suspect]
     Active Substance: REMIFENTANIL
     Indication: Anaesthesia
     Dosage: 0.12 PG/KG/MIN
  16. THIOPENTAL SODIUM [Suspect]
     Active Substance: THIOPENTAL SODIUM
     Indication: Endotracheal intubation
     Dosage: 450 MG, UNK
  17. ATOSIBAN [Suspect]
     Active Substance: ATOSIBAN
     Indication: Product used for unknown indication
     Dosage: UNK
  18. GENTAMICIN SULFATE [Suspect]
     Active Substance: GENTAMICIN SULFATE
     Indication: Antibiotic prophylaxis
     Dosage: 120 MG, UNK

REACTIONS (3)
  - Premature rupture of membranes [Unknown]
  - Exposure during pregnancy [Unknown]
  - Premature delivery [Unknown]
